FAERS Safety Report 8555603-X (Version None)
Quarter: 2012Q3

REPORT INFORMATION
  Report Type: 
  Country: None (occurrence: None)
  Receive Date: 20120731
  Receipt Date: 20110927
  Transmission Date: 20120928
  Serious: No
  Sender: FDA-Public Use
  Company Number: US-ASTRAZENECA-2010SE53896

PATIENT
  Age: 80 Year
  Sex: Female
  Weight: 68 kg

DRUGS (8)
  1. SEROQUEL XR [Suspect]
     Indication: BIPOLAR DISORDER
     Route: 048
     Dates: start: 20090301
  2. SIMVASTATIN [Concomitant]
  3. SYMBICORT [Concomitant]
     Indication: CHRONIC OBSTRUCTIVE PULMONARY DISEASE
  4. KLOR-CON [Concomitant]
  5. PROAIR HFA [Concomitant]
  6. LEVOTHYROXINE SODIUM [Concomitant]
  7. MIRTAZAPINE [Concomitant]
  8. OMEPRAZOLE [Concomitant]

REACTIONS (3)
  - BRONCHITIS [None]
  - HEARING IMPAIRED [None]
  - CHOLELITHIASIS [None]
